FAERS Safety Report 8214787-3 (Version None)
Quarter: 2012Q1

REPORT INFORMATION
  Report Type: 
  Country: None (occurrence: None)
  Receive Date: 20120316
  Receipt Date: 20120306
  Transmission Date: 20120608
  Serious: Yes (Hospitalization, Other)
  Sender: FDA-Public Use
  Company Number: GB-BRISTOL-MYERS SQUIBB COMPANY-16440620

PATIENT
  Age: 78 Year
  Sex: Male

DRUGS (2)
  1. QUESTRAN [Suspect]
     Dosage: 1DF=THREE POWDER SACHETS
  2. LOPERAMIDE [Suspect]
     Dosage: CAPSULES

REACTIONS (1)
  - CEREBROVASCULAR ACCIDENT [None]
